FAERS Safety Report 7131098-8 (Version None)
Quarter: 2010Q4

REPORT INFORMATION
  Report Type: 
  Country: None (occurrence: None)
  Receive Date: 20101124
  Receipt Date: 20101124
  Transmission Date: 20110411
  Serious: Yes (Life-Threatening, Other)
  Sender: FDA-Public Use
  Company Number: None

PATIENT
  Age: 27 Year
  Sex: Female
  Weight: 52.6173 kg

DRUGS (1)
  1. COBROXIN STAGE 2 PAIN RELEAVER COBROXIN [Suspect]

REACTIONS (14)
  - COLD SWEAT [None]
  - DRUG INTERACTION [None]
  - DYSPHORIA [None]
  - DYSPNOEA [None]
  - EYE PRURITUS [None]
  - FEELING ABNORMAL [None]
  - FEELING HOT [None]
  - LUNG DISORDER [None]
  - OROPHARYNGEAL PAIN [None]
  - PARAESTHESIA [None]
  - PRURITUS [None]
  - PYREXIA [None]
  - THROAT TIGHTNESS [None]
  - VISUAL IMPAIRMENT [None]
